FAERS Safety Report 8746480 (Version 2)
Quarter: 2012Q4

REPORT INFORMATION
  Report Type: 
  Country: CN (occurrence: CN)
  Receive Date: 20120827
  Receipt Date: 20120831
  Transmission Date: 20130627
  Serious: Yes (Other)
  Sender: FDA-Public Use
  Company Number: CN-ASTRAZENECA-2012SE57512

PATIENT
  Age: 10 Year
  Sex: Male

DRUGS (3)
  1. PULMICORT TURBUHALER [Suspect]
     Indication: ASTHMA
     Dosage: 1 SPRAY DAILY
     Route: 055
     Dates: start: 2007
  2. PULMICORT TURBUHALER [Suspect]
     Indication: ASTHMA
     Route: 055
     Dates: start: 2009
  3. BRONCHODILATORS [Concomitant]
     Dates: start: 201111, end: 201201

REACTIONS (6)
  - Asthma [Recovering/Resolving]
  - Bronchial secretion retention [Recovered/Resolved]
  - Bronchitis [Recovered/Resolved]
  - Tracheitis [Recovered/Resolved]
  - Varicella [Recovered/Resolved]
  - Drug dose omission [Recovered/Resolved]
